FAERS Safety Report 7827341-X (Version None)
Quarter: 2011Q4

REPORT INFORMATION
  Report Type: 
  Country: None (occurrence: None)
  Receive Date: 20111017
  Receipt Date: 20111006
  Transmission Date: 20120403
  Serious: Yes (Other)
  Sender: FDA-Public Use
  Company Number: NO-ACCORD-010901

PATIENT

DRUGS (7)
  1. PROCARBAZINE HYDROCHLORIDE [Suspect]
     Indication: HODGKIN'S DISEASE
     Dosage: 100.00-MG/M2-/ORAL
     Route: 048
  2. BLEOMYCIN SULFATE [Suspect]
     Indication: HODGKIN'S DISEASE
     Dosage: 10000.00-IU- /INTRAVENOUS (NOT OTHERWISE SPECIFIED)
     Route: 042
  3. PREDNISOLONE [Suspect]
     Indication: HODGKIN'S DISEASE
     Dosage: 40.00-MG/M2-/ORAL
     Route: 048
  4. DOXORUBICIN HCL [Suspect]
     Indication: HODGKIN'S DISEASE
     Dosage: 25.00-MG/M2- /INTRAVENOUS (NOT OTHERWISE SPECIFIED)
     Route: 042
  5. CYCLOPHOSPHAMIDE [Suspect]
     Indication: HODGKIN'S DISEASE
     Dosage: 650.00-MG/M2/INTRAVENOUS (NOT SPECIFIED SPECIFIED)
     Route: 042
  6. ETOPOSIDE [Suspect]
     Indication: HODGKIN'S DISEASE
     Dosage: 100.00-MG/M2 /INTRAVENOUS (NOT OTHERWISE SPECIFIED)
     Route: 042
  7. VINCRISTINE [Suspect]
     Indication: HODGKIN'S DISEASE
     Dosage: 40-MG/M2- INTRAVENOUS (NOT OTHERWISE SPECIFIED)
     Route: 042

REACTIONS (2)
  - OFF LABEL USE [None]
  - PNEUMOCYSTIS JIROVECI PNEUMONIA [None]
